FAERS Safety Report 4592368-0 (Version None)
Quarter: 2005Q1

REPORT INFORMATION
  Report Type: 
  Country: None (occurrence: None)
  Receive Date: 20050228
  Receipt Date: 20041228
  Transmission Date: 20050727
  Serious: Yes (Other)
  Sender: FDA-Public Use
  Company Number: US-BRISTOL-MYERS SQUIBB COMPANY-12808150

PATIENT
  Age: 11 Year
  Sex: Male
  Weight: 59 kg

DRUGS (4)
  1. ABILIFY [Suspect]
     Indication: ABNORMAL BEHAVIOUR
     Dosage: 3 MG; GRADUALLY INCREASED TO 5 MG, 10 MG, 15 MG; THEN TO 30 MG
     Route: 048
  2. STRATTERA [Concomitant]
     Dosage: 80 MG REDUCED TO 40 MG AS OF 28-DEC-04.
  3. ZOLOFT [Concomitant]
  4. ZYPREXA [Concomitant]
     Dosage: 2.5 MG - 2 TO 3 TIMES DAILY (ONLY RECENTLY DISCONTINUED)

REACTIONS (3)
  - AGGRESSION [None]
  - AGITATION [None]
  - MOOD ALTERED [None]
